FAERS Safety Report 4276582-X (Version None)
Quarter: 2004Q1

REPORT INFORMATION
  Report Type: 
  Country: None (occurrence: None)
  Receive Date: 20040121
  Receipt Date: 20031216
  Transmission Date: 20041129
  Serious: Yes (Death)
  Sender: FDA-Public Use
  Company Number: WAES 0312GBR00152

PATIENT
  Age: 74 Year
  Sex: Male
  Weight: 54 kg

DRUGS (5)
  1. DILTIAZEM HYDROCHLORIDE [Concomitant]
     Indication: ANGINA PECTORIS
     Route: 048
     Dates: start: 20030904
  2. ETORICOXIB [Concomitant]
     Indication: ARTHRITIS
     Route: 048
     Dates: start: 20030926
  3. ZETIA [Suspect]
     Indication: HYPERCHOLESTEROLAEMIA
     Route: 048
     Dates: start: 20030419, end: 20031203
  4. FOLIC ACID [Concomitant]
     Indication: ANAEMIA
     Route: 048
     Dates: start: 20020318
  5. LOSARTAN POTASSIUM [Concomitant]
     Indication: ANGINA PECTORIS
     Route: 048
     Dates: start: 20030829

REACTIONS (16)
  - ABDOMINAL PAIN [None]
  - ARRHYTHMIA [None]
  - ATHEROSCLEROSIS [None]
  - CIRCULATORY COLLAPSE [None]
  - CORONARY ARTERY ATHEROSCLEROSIS [None]
  - CORONARY ARTERY OCCLUSION [None]
  - CORONARY ARTERY THROMBOSIS [None]
  - DIARRHOEA [None]
  - DILATATION VENTRICULAR [None]
  - DIVERTICULUM INTESTINAL [None]
  - DYSPNOEA [None]
  - ENDOCARDIAL FIBROSIS [None]
  - MYOCARDIAL ISCHAEMIA [None]
  - PULMONARY CONGESTION [None]
  - RENAL CYST [None]
  - SCAR [None]
